FAERS Safety Report 6332964-3 (Version None)
Quarter: 2009Q3

REPORT INFORMATION
  Report Type: 
  Country: None (occurrence: None)
  Receive Date: 20090828
  Receipt Date: 20090818
  Transmission Date: 20100115
  Serious: Yes (Hospitalization)
  Sender: FDA-Public Use
  Company Number: PHHY2008JP33255

PATIENT
  Sex: Female

DRUGS (3)
  1. GLEEVEC [Suspect]
     Indication: ACUTE LYMPHOCYTIC LEUKAEMIA
     Dosage: 400 MG/DAY
     Route: 048
     Dates: start: 20070319, end: 20070415
  2. GLEEVEC [Suspect]
     Dosage: 400 MG/DAY
     Route: 048
     Dates: start: 20070602, end: 20070705
  3. GLEEVEC [Suspect]
     Dosage: 200 MG/DAY
     Route: 048
     Dates: start: 20081015, end: 20081222

REACTIONS (4)
  - ACUTE LYMPHOCYTIC LEUKAEMIA RECURRENT [None]
  - HEADACHE [None]
  - LEUKAEMIC INFILTRATION BRAIN [None]
  - LYMPHOCYTE COUNT DECREASED [None]
